FAERS Safety Report 6214258-X (Version None)
Quarter: 2009Q2

REPORT INFORMATION
  Report Type: 
  Country: None (occurrence: None)
  Receive Date: 20090604
  Receipt Date: 20090526
  Transmission Date: 20091009
  Serious: Yes (Life-Threatening, Hospitalization)
  Sender: FDA-Public Use
  Company Number: PHHY2009CH16292

PATIENT
  Sex: Female

DRUGS (11)
  1. LEPONEX [Suspect]
     Dosage: 300 MG/DAY
     Dates: start: 20080501, end: 20090312
  2. LEPONEX [Suspect]
     Dosage: 300 MG/DAY
     Dates: start: 20090320
  3. ZYPREXA [Suspect]
     Dosage: 20 MG/DAY
     Dates: start: 20090223, end: 20090313
  4. CIPRALEX [Concomitant]
     Dosage: 20 MG/DAY
  5. ELTROXIN [Concomitant]
     Dosage: 50 UG/DAY
     Dates: start: 20040101
  6. ELTROXIN [Concomitant]
     Dosage: 25 UG/DAY
     Dates: start: 20090404
  7. METFIN [Concomitant]
     Dosage: 850 MG/DAY
     Dates: start: 20050101
  8. SOLIAN [Concomitant]
     Dosage: 50 MG/DAY
     Dates: start: 20090404, end: 20090404
  9. SOLIAN [Concomitant]
     Dosage: 100 MG, QD
     Dates: start: 20090405, end: 20090405
  10. SOLIAN [Concomitant]
     Dosage: 150 MG, QD
     Dates: start: 20090406
  11. CO-AMOXI -MEPHA [Concomitant]
     Dosage: UNK
     Dates: start: 20090312

REACTIONS (8)
  - BLADDER CATHETERISATION [None]
  - CONFUSIONAL STATE [None]
  - CONSTIPATION [None]
  - DIARRHOEA [None]
  - ILEUS [None]
  - PSYCHIATRIC DECOMPENSATION [None]
  - SURGERY [None]
  - THYROXINE INCREASED [None]
